FAERS Safety Report 7092111-X (Version None)
Quarter: 2010Q4

REPORT INFORMATION
  Report Type: 
  Country: None (occurrence: None)
  Receive Date: 20101109
  Receipt Date: 20101025
  Transmission Date: 20110411
  Serious: Yes (Hospitalization)
  Sender: FDA-Public Use
  Company Number: PHHY2010US18800

PATIENT
  Sex: Female
  Weight: 79.365 kg

DRUGS (4)
  1. FEMARA [Suspect]
     Indication: ASSISTED FERTILISATION
     Dosage: 5 MG FOR 5 DAYS A MONTH
     Route: 048
     Dates: start: 20090701, end: 20100301
  2. CLOMID [Concomitant]
     Dosage: 50 MG, FOR 5 DAYS
     Route: 048
     Dates: start: 20100401
  3. FLOVENT [Concomitant]
     Indication: ASTHMA
     Dosage: UPTO 5 PUFF TWO TIMES A DAY
     Dates: start: 20100801
  4. NASONEX [Concomitant]
     Indication: ASTHMA
     Dosage: UPTO 5 PUFF TWO TIMES A DAY
     Dates: start: 20100801

REACTIONS (8)
  - ACTH STIMULATION TEST ABNORMAL [None]
  - ADRENAL INSUFFICIENCY [None]
  - ADRENAL SUPPRESSION [None]
  - ASTHENIA [None]
  - BURNOUT SYNDROME [None]
  - HYPOAESTHESIA [None]
  - PALPITATIONS [None]
  - PARAESTHESIA [None]
